FAERS Safety Report 18177703 (Version 2)
Quarter: 2020Q3

REPORT INFORMATION
  Report Type: Spontaneous
  Country: DE (occurrence: DE)
  Receive Date: 20200820
  Receipt Date: 20200831
  Transmission Date: 20201103
  Serious: Yes (Hospitalization)
  Sender: FDA-Public Use
  Company Number: DE-MYLANLABS-2020M1072309

PATIENT
  Sex: Female

DRUGS (3)
  1. RYTMONORM [Suspect]
     Active Substance: PROPAFENONE
     Dosage: UNK
  2. PROPANOLOL                         /00030001/ [Concomitant]
     Active Substance: PROPRANOLOL HYDROCHLORIDE
     Indication: SUPRAVENTRICULAR TACHYCARDIA
     Dosage: 0.5 MILLIGRAM, TID (TIMELY ONE WEEK AFTER BIRTH)
     Route: 048
  3. RYTMONORM [Suspect]
     Active Substance: PROPAFENONE
     Indication: SUPRAVENTRICULAR TACHYCARDIA
     Dosage: 1.75 MILLILITER (BEFORE THE MEAL)
     Route: 048

REACTIONS (7)
  - Secretion discharge [Recovered/Resolved]
  - Vomiting [Recovered/Resolved]
  - Supraventricular tachycardia [Recovered/Resolved]
  - Abdominal pain upper [Recovered/Resolved]
  - Sleep disorder [Recovered/Resolved]
  - Cough [Recovered/Resolved]
  - Off label use [Unknown]
